FAERS Safety Report 16589858 (Version 2)
Quarter: 2019Q3

REPORT INFORMATION
  Report Type: Spontaneous
  Country: NL (occurrence: NL)
  Receive Date: 20190718
  Receipt Date: 20190812
  Transmission Date: 20191004
  Serious: Yes (Other)
  Sender: FDA-Public Use
  Company Number: NL-009507513-1907NLD010136

PATIENT
  Age: 82 Year
  Sex: Male

DRUGS (6)
  1. SOOLANTRA [Concomitant]
     Active Substance: IVERMECTIN
     Dosage: 10MG/G
  2. MINOCIN [Concomitant]
     Active Substance: MINOCYCLINE HYDROCHLORIDE
     Dosage: 100NO 60 2DD, 100MG
  3. EMOVATE [Concomitant]
     Dosage: 0.5 MILLIGRAM/GRAM
  4. KEYTRUDA [Suspect]
     Active Substance: PEMBROLIZUMAB
     Indication: BLADDER CANCER
     Dosage: 200 MILLIGRAM, EVERY 3 WEEKS
     Dates: start: 20150728
  5. CIPROXIN (CIPROFLOXACIN HYDROCHLORIDE) [Concomitant]
     Dosage: 250 MILLIGRAM, 2DD FOR 14 DAYS
  6. BUMETANIDE. [Concomitant]
     Active Substance: BUMETANIDE
     Dosage: UNK
     Dates: end: 2019

REACTIONS (10)
  - Renal impairment [Unknown]
  - Renal impairment [Recovering/Resolving]
  - Urinary tract infection [Unknown]
  - Blood creatinine increased [Unknown]
  - Malignant neoplasm progression [Unknown]
  - Urinary tract infection [Unknown]
  - Dermatitis [Recovered/Resolved]
  - Urinary tract infection [Unknown]
  - Urinary tract infection bacterial [Recovering/Resolving]
  - Urinary tract infection [Unknown]

NARRATIVE: CASE EVENT DATE: 201604
